FAERS Safety Report 16025911 (Version 2)
Quarter: 2019Q4

REPORT INFORMATION
  Report Type: Spontaneous
  Country: FR (occurrence: FR)
  Receive Date: 20190302
  Receipt Date: 20191121
  Transmission Date: 20200122
  Serious: Yes (Hospitalization)
  Sender: FDA-Public Use
  Company Number: FR-SUN PHARMACEUTICAL INDUSTRIES LTD-2019RR-200460

PATIENT
  Age: 40 Year
  Sex: Male
  Weight: 90 kg

DRUGS (3)
  1. NUROFENFLASH 400 MG [Suspect]
     Active Substance: IBUPROFEN LYSINE
     Indication: INFLUENZA LIKE ILLNESS
     Dosage: 3 DOSAGE FORM, DAILY
     Route: 048
     Dates: start: 20190106, end: 20190109
  2. IBUPROFEN. [Suspect]
     Active Substance: IBUPROFEN
     Indication: INFLUENZA LIKE ILLNESS
     Dosage: ()
     Route: 048
     Dates: start: 20190106, end: 20190106
  3. PARACETAMOL [Suspect]
     Active Substance: ACETAMINOPHEN
     Indication: INFLUENZA LIKE ILLNESS
     Dosage: ()
     Route: 048
     Dates: start: 20190106, end: 20190109

REACTIONS (3)
  - Beta haemolytic streptococcal infection [Recovered/Resolved]
  - Acute kidney injury [Recovered/Resolved]
  - Dermo-hypodermitis [Recovered/Resolved with Sequelae]

NARRATIVE: CASE EVENT DATE: 20190109
